FAERS Safety Report 8238574-5 (Version None)
Quarter: 2012Q1

REPORT INFORMATION
  Report Type: 
  Country: None (occurrence: None)
  Receive Date: 20120327
  Receipt Date: 20120319
  Transmission Date: 20120608
  Serious: Yes (Hospitalization, Other)
  Sender: FDA-Public Use
  Company Number: US-ABBOTT-12P-163-0895727-00

PATIENT
  Sex: Male
  Weight: 80.812 kg

DRUGS (4)
  1. ENOXAPARIN [Suspect]
     Indication: DEEP VEIN THROMBOSIS
     Dosage: SOMETIMES SPLIT 40MG AM/40MG PM
     Route: 058
     Dates: start: 20110401
  2. LUPRON DEPOT [Suspect]
     Indication: PROSTATE CANCER RECURRENT
     Dates: start: 20100101, end: 20100101
  3. ENOXAPARIN [Suspect]
     Dates: end: 20111201
  4. LUPRON DEPOT [Suspect]
     Dates: start: 20111001

REACTIONS (8)
  - URINARY RETENTION [None]
  - DEEP VEIN THROMBOSIS [None]
  - PROSTATE CANCER RECURRENT [None]
  - URINARY INCONTINENCE [None]
  - HAEMATURIA [None]
  - BLADDER NECK OBSTRUCTION [None]
  - URETHRAL HAEMORRHAGE [None]
  - LYMPHADENOPATHY [None]
